FAERS Safety Report 6189279-6 (Version None)
Quarter: 2009Q2

REPORT INFORMATION
  Report Type: 
  Country: None (occurrence: None)
  Receive Date: 20090512
  Receipt Date: 20090504
  Transmission Date: 20091009
  Serious: Yes (Hospitalization, Other)
  Sender: FDA-Public Use
  Company Number: 2009SP009503

PATIENT
  Sex: Female

DRUGS (1)
  1. INTERFERON [Suspect]
     Indication: HEPATITIS C
     Dosage: ; SC
     Route: 058

REACTIONS (4)
  - ALCOHOL USE [None]
  - DEPRESSION [None]
  - DRUG ABUSE [None]
  - MALAISE [None]
